FAERS Safety Report 6835797-4 (Version None)
Quarter: 2010Q3

REPORT INFORMATION
  Report Type: 
  Country: None (occurrence: None)
  Receive Date: 20100713
  Receipt Date: 20100706
  Transmission Date: 20110219
  Serious: Yes (Hospitalization)
  Sender: FDA-Public Use
  Company Number: US-BAYER-201017708BCC

PATIENT
  Age: 86 Year
  Sex: Female
  Weight: 47 kg

DRUGS (1)
  1. ASPIRIN [Suspect]
     Indication: ISCHAEMIC HEART DISEASE PROPHYLAXIS
     Route: 048

REACTIONS (2)
  - BLEEDING TIME PROLONGED [None]
  - EPISTAXIS [None]
